FAERS Safety Report 4368308-6 (Version None)
Quarter: 2004Q2

REPORT INFORMATION
  Report Type: 
  Country: None (occurrence: None)
  Receive Date: 20040602
  Receipt Date: 20040524
  Transmission Date: 20050107
  Serious: Yes (Other)
  Sender: FDA-Public Use
  Company Number: PHFR2004GB02223

PATIENT
  Age: 32 Year
  Sex: Male
  Weight: 80 kg

DRUGS (3)
  1. CYCLOSPORINE [Suspect]
     Indication: LIVER TRANSPLANT
     Dosage: 25 MG, QD
     Route: 048
     Dates: start: 19850101
  2. VENLAFAXINE [Concomitant]
     Indication: PANIC REACTION
     Dosage: 75 MG, BID
     Route: 048
     Dates: start: 20031101
  3. PAROXETINE HCL [Concomitant]
     Dosage: UNK, UNK
     Route: 048
     Dates: start: 20020101

REACTIONS (2)
  - RETINAL DEGENERATION [None]
  - VISUAL DISTURBANCE [None]
